FAERS Safety Report 12574317 (Version 1)
Quarter: 2016Q3

REPORT INFORMATION
  Report Type: Not Available
  Country: US (occurrence: US)
  Receive Date: 20160720
  Receipt Date: 20160720
  Transmission Date: 20161109
  Serious: Yes (Hospitalization)
  Sender: FDA-Public Use
  Company Number: US-ANIPHARMA-2016-US-004839

PATIENT
  Age: 55 Year
  Sex: Male

DRUGS (4)
  1. LASIX [Suspect]
     Active Substance: FUROSEMIDE
     Dosage: UNKNOWN
     Route: 065
     Dates: end: 201606
  2. CARBIDOPA/LEVODOPA [Suspect]
     Active Substance: CARBIDOPA\LEVODOPA
     Dosage: UNKNOWN
     Route: 065
     Dates: end: 201606
  3. INDERAL LA [Suspect]
     Active Substance: PROPRANOLOL HYDROCHLORIDE
     Dosage: UNKNOWN
     Route: 065
     Dates: end: 201606
  4. NORTHERA [Suspect]
     Active Substance: DROXIDOPA
     Dosage: 600 MG DAILY
     Route: 065
     Dates: start: 201605

REACTIONS (7)
  - Loss of consciousness [Unknown]
  - Dizziness [Unknown]
  - Foot fracture [Unknown]
  - Renal failure [Unknown]
  - Orthostatic hypotension [Unknown]
  - Hypertension [Unknown]
  - Tremor [Unknown]

NARRATIVE: CASE EVENT DATE: 201606
